FAERS Safety Report 15692553 (Version 1)
Quarter: 2018Q4

REPORT INFORMATION
  Report Type: Spontaneous
  Country: US (occurrence: US)
  Receive Date: 20181206
  Receipt Date: 20181206
  Transmission Date: 20190205
  Serious: No
  Sender: FDA-Public Use
  Company Number: US-PURDUE-USA-2018-0144570

PATIENT
  Age: 57 Year
  Sex: Female

DRUGS (4)
  1. HYSINGLA ER [Suspect]
     Active Substance: HYDROCODONE BITARTRATE
     Indication: PAIN
     Dosage: 80 MG, DAILY
     Route: 048
     Dates: start: 20180801
  2. BUTALBITAL, ACETAMINOPHEN, AND CAFFEINE [Concomitant]
     Active Substance: ACETAMINOPHEN\BUTALBITAL\CAFFEINE
     Indication: MIGRAINE
     Dosage: 50MG/325MG/40MG, Q6-8H
     Route: 048
  3. HYDROCODONE [Concomitant]
     Active Substance: HYDROCODONE
     Indication: PAIN
     Dosage: 10MG/325MG, 6-8 TIMES, DAILY
     Route: 048
     Dates: start: 1996, end: 201808
  4. HYDROCODONE [Concomitant]
     Active Substance: HYDROCODONE
     Dosage: 10MG/325MG, TID
     Route: 048
     Dates: start: 201808

REACTIONS (3)
  - Nausea [Not Recovered/Not Resolved]
  - Headache [Not Recovered/Not Resolved]
  - Abdominal pain [Not Recovered/Not Resolved]

NARRATIVE: CASE EVENT DATE: 201808
